FAERS Safety Report 20291949 (Version 1)
Quarter: 2022Q1

REPORT INFORMATION
  Report Type: Spontaneous
  Country: CA (occurrence: CA)
  Receive Date: 20220104
  Receipt Date: 20220104
  Transmission Date: 20220424
  Serious: Yes (Other)
  Sender: FDA-Public Use
  Company Number: CA-TEVA-2021-CA-1994795

PATIENT

DRUGS (1)
  1. PANTOPRAZOLE MAGNESIUM [Suspect]
     Active Substance: PANTOPRAZOLE MAGNESIUM
     Indication: Product used for unknown indication
     Route: 065

REACTIONS (18)
  - Abdominal distension [Recovered/Resolved]
  - Abdominal pain [Recovered/Resolved]
  - Anxiety [Recovered/Resolved]
  - Arthralgia [Recovered/Resolved]
  - Asthenia [Recovered/Resolved]
  - Chest discomfort [Recovered/Resolved]
  - Constipation [Recovered/Resolved]
  - Decreased appetite [Recovered/Resolved]
  - Depressed mood [Recovered/Resolved]
  - Depression [Recovered/Resolved]
  - Dizziness [Recovered/Resolved]
  - Fatigue [Recovered/Resolved]
  - Feeling abnormal [Recovered/Resolved]
  - Flatulence [Recovered/Resolved]
  - Headache [Recovered/Resolved]
  - Insomnia [Recovered/Resolved]
  - Nausea [Recovered/Resolved]
  - Paraesthesia [Recovered/Resolved]
